FAERS Safety Report 7718651-5 (Version None)
Quarter: 2011Q3

REPORT INFORMATION
  Report Type: 
  Country: None (occurrence: None)
  Receive Date: 20110830
  Receipt Date: 20110817
  Transmission Date: 20111222
  Serious: Yes (Hospitalization)
  Sender: FDA-Public Use
  Company Number: JP-ELI_LILLY_AND_COMPANY-JP201104004325

PATIENT
  Sex: Female

DRUGS (2)
  1. FORTEO [Suspect]
     Dosage: UNK
     Route: 058
  2. CALCIUM CARBONATE [Concomitant]

REACTIONS (3)
  - CATARACT OPERATION [None]
  - INJECTION SITE HAEMATOMA [None]
  - FEELING ABNORMAL [None]
